FAERS Safety Report 25747174 (Version 3)
Quarter: 2025Q4

REPORT INFORMATION
  Report Type: Spontaneous
  Country: US (occurrence: US)
  Receive Date: 20250901
  Receipt Date: 20251201
  Transmission Date: 20260118
  Serious: No
  Sender: SANOFI AVENTIS
  Company Number: US-SA-2025SA257781

PATIENT
  Sex: Female
  Weight: 61.36 kg

DRUGS (4)
  1. DUPIXENT [Suspect]
     Active Substance: DUPILUMAB
     Indication: Nasal polyps
     Dosage: 300 MG, QOW
     Route: 058
     Dates: start: 202304
  2. SALINE [Concomitant]
     Active Substance: SODIUM CHLORIDE
     Dosage: UNK
  3. XHANCE [Concomitant]
     Active Substance: FLUTICASONE PROPIONATE
     Dosage: UNK
  4. BUDESONIDE [Concomitant]
     Active Substance: BUDESONIDE
     Dosage: UNK

REACTIONS (7)
  - Palpitations [Unknown]
  - Rash pruritic [Unknown]
  - Skin discolouration [Unknown]
  - Myalgia [Unknown]
  - Injection site pain [Unknown]
  - Product preparation error [Unknown]
  - Arthralgia [Unknown]
